FAERS Safety Report 6974935-X (Version None)
Quarter: 2010Q3

REPORT INFORMATION
  Report Type: 
  Country: None (occurrence: None)
  Receive Date: 20100909
  Receipt Date: 20081222
  Transmission Date: 20110219
  Serious: No
  Sender: FDA-Public Use
  Company Number: US-WYE-H07383508

PATIENT
  Sex: Female
  Weight: 70.37 kg

DRUGS (3)
  1. PRISTIQ [Suspect]
     Indication: ANXIETY
     Route: 048
     Dates: start: 20081201, end: 20081201
  2. ZOVIRAX [Concomitant]
  3. LIPITOR [Concomitant]

REACTIONS (3)
  - INTENTIONAL DRUG MISUSE [None]
  - PALPITATIONS [None]
  - SOMNOLENCE [None]
